FAERS Safety Report 15296783 (Version 1)
Quarter: 2018Q3

REPORT INFORMATION
  Report Type: Report from Study
  Country: US (occurrence: US)
  Receive Date: 20180820
  Receipt Date: 20180820
  Transmission Date: 20181010
  Serious: Yes (Other)
  Sender: FDA-Public Use
  Company Number: US-TESARO, INC-US-2018TSO04065

PATIENT
  Sex: Female

DRUGS (3)
  1. ZEJULA [Suspect]
     Active Substance: NIRAPARIB
     Dosage: 2 DF, QD
     Route: 048
     Dates: start: 20180302
  2. ZEJULA [Suspect]
     Active Substance: NIRAPARIB
     Indication: OVARIAN CANCER
     Dosage: 2 DF, QD
     Route: 048
     Dates: start: 20180114
  3. ZEJULA [Suspect]
     Active Substance: NIRAPARIB
     Dosage: 3 DF, UNK
     Route: 048
     Dates: start: 20180215

REACTIONS (4)
  - Urinary tract infection [Unknown]
  - Drug dose omission [Recovered/Resolved]
  - Dehydration [Unknown]
  - Malaise [Recovering/Resolving]
